FAERS Safety Report 17417776 (Version 1)
Quarter: 2020Q1

REPORT INFORMATION
  Report Type: Report from Study
  Country: US (occurrence: US)
  Receive Date: 20200214
  Receipt Date: 20200214
  Transmission Date: 20200409
  Serious: Yes (Hospitalization)
  Sender: FDA-Public Use
  Company Number: US-GILEAD-2020-0450985

PATIENT
  Age: 64 Year
  Sex: Male

DRUGS (3)
  1. PULMOZYME [Concomitant]
     Active Substance: DORNASE ALFA
  2. AZTREONAM LYSINE [Suspect]
     Active Substance: AZTREONAM LYSINE
     Indication: CYSTIC FIBROSIS
     Dosage: 75 MG, TID
     Route: 055
     Dates: start: 20180320
  3. FORTEO [Concomitant]
     Active Substance: TERIPARATIDE

REACTIONS (1)
  - Road traffic accident [Unknown]

NARRATIVE: CASE EVENT DATE: 20200201
